FAERS Safety Report 4272646-5 (Version None)
Quarter: 2004Q1

REPORT INFORMATION
  Report Type: 
  Country: None (occurrence: None)
  Receive Date: 20040115
  Receipt Date: 20040115
  Transmission Date: 20041129
  Serious: Yes (Other)
  Sender: FDA-Public Use
  Company Number: None

PATIENT
  Age: 40 Year
  Sex: Female
  Weight: 60.782 kg

DRUGS (1)
  1. LEXAPRO [Suspect]
     Indication: DEPRESSION
     Dosage: 10 MG 1X DAILY ORAL
     Route: 048
     Dates: start: 20030901, end: 20040112

REACTIONS (3)
  - DISCOMFORT [None]
  - DRUG INEFFECTIVE [None]
  - PRURITUS GENERALISED [None]
